FAERS Safety Report 9913189 (Version 1)
Quarter: 2014Q1

REPORT INFORMATION
  Report Type: Spontaneous
  Country: US (occurrence: None)
  Receive Date: 20140218
  Receipt Date: 20140218
  Transmission Date: 20141002
  Serious: No
  Sender: FDA-Public Use
  Company Number: None

PATIENT
  Age: 60 Year
  Sex: Male

DRUGS (6)
  1. SOVALDI [Suspect]
     Indication: HEPATITIS C VIRUS TEST POSITIVE
     Route: 048
     Dates: start: 20140116, end: 20140212
  2. RIBAVIRIN [Suspect]
     Indication: HEPATITIS C VIRUS TEST POSITIVE
     Route: 048
  3. BACLOFEN [Concomitant]
  4. DILAUDID [Concomitant]
  5. IODINE [Concomitant]
  6. METOPROLOL [Concomitant]

REACTIONS (4)
  - Stomatitis [None]
  - Laryngeal ulceration [None]
  - Impaired healing [None]
  - Skin ulcer [None]
